FAERS Safety Report 6086271-7 (Version None)
Quarter: 2009Q1

REPORT INFORMATION
  Report Type: 
  Country: None (occurrence: None)
  Receive Date: 20090217
  Receipt Date: 20080820
  Transmission Date: 20090719
  Serious: Yes (Other)
  Sender: FDA-Public Use
  Company Number: MC200800388

PATIENT
  Age: 55 Year
  Sex: Male

DRUGS (2)
  1. ANGIOMAX [Suspect]
     Indication: ARTERIAL REPAIR
     Dosage: 0.75 MG/KG, BOLUS, INTRAVENOUS; 0.25 MG/KG, HR, INTRAVENOUS
     Route: 042
     Dates: start: 20080820, end: 20080820
  2. ANGIOMAX [Suspect]
     Indication: ARTERIAL REPAIR
     Dosage: 0.75 MG/KG, BOLUS, INTRAVENOUS; 0.25 MG/KG, HR, INTRAVENOUS
     Route: 042
     Dates: start: 20080820

REACTIONS (2)
  - HAEMATOMA [None]
  - PUNCTURE SITE HAEMORRHAGE [None]
